FAERS Safety Report 8677319 (Version 6)
Quarter: 2013Q2

REPORT INFORMATION
  Report Type: Spontaneous
  Country: US (occurrence: US)
  Receive Date: 20120723
  Receipt Date: 20130624
  Transmission Date: 20140414
  Serious: Yes (Hospitalization, Other)
  Sender: FDA-Public Use
  Company Number: US-009507513-1207USA003721

PATIENT
  Sex: Female
  Weight: 69.84 kg

DRUGS (20)
  1. FOSAMAX [Suspect]
     Indication: OSTEOPOROSIS
     Dosage: 70 MG, QW
     Route: 048
     Dates: start: 20030822, end: 2008
  2. FOSAMAX [Suspect]
     Indication: OSTEOPENIA
  3. FOSAMAX [Suspect]
     Indication: OSTEOPOROSIS
     Dosage: 70 MG, QW
     Route: 048
     Dates: start: 20090108
  4. ALENDRONATE SODIUM [Suspect]
     Indication: OSTEOPOROSIS
     Dosage: 70 MG, QW
     Route: 048
     Dates: start: 20110622
  5. POTASSIUM (UNSPECIFIED) [Concomitant]
     Dosage: 10 MG, QD
     Dates: start: 2002
  6. CALCIUM (UNSPECIFIED) [Concomitant]
     Dosage: 1200 MG, QD
     Dates: start: 2002
  7. VITAMIN D (UNSPECIFIED) [Concomitant]
     Dosage: 1000-2000 IU QD
     Dates: start: 2002
  8. FOLIC ACID [Concomitant]
     Dosage: 400 MICROGRAM, QD
     Route: 048
     Dates: start: 2002
  9. MAGNESIUM (UNSPECIFIED) [Concomitant]
     Dosage: 500 MG, QD
     Dates: start: 2002
  10. PYRIDOXINE [Concomitant]
     Dosage: 200 MG, QD
     Dates: start: 2002
  11. VITAMIN E [Concomitant]
     Dosage: 400 IU, QD
     Dates: start: 2002
  12. BLACK COHOSH [Concomitant]
     Dosage: 600 MG, QD
     Dates: start: 2002
  13. DIMETHYL SULFONE [Concomitant]
     Dosage: 1500 MG, QD
     Dates: start: 2002
  14. SYNTHROID [Concomitant]
     Indication: HYPOTHYROIDISM
     Dosage: 75 MICROGRAM, QD
     Route: 048
     Dates: start: 1980
  15. LEVOTHYROXINE SODIUM [Concomitant]
     Indication: HYPOTHYROIDISM
     Dosage: UNK
     Dates: start: 1980
  16. ATIVAN [Concomitant]
     Indication: ANXIETY
     Dosage: 2 TAB TID PRN
     Route: 048
     Dates: start: 2000
  17. LORAZEPAM [Concomitant]
     Indication: ANXIETY
     Dosage: UNK
     Dates: start: 2000
  18. EFFEXOR [Concomitant]
     Indication: HOT FLUSH
     Dosage: 75 MG, QD
     Route: 048
     Dates: start: 1999
  19. HYDROCHLOROTHIAZIDE (+) TRIAMTERENE [Concomitant]
     Indication: HYPERTENSION
     Dosage: UNK
     Dates: start: 1990
  20. ENALAPRIL MALEATE [Concomitant]
     Indication: HYPERTENSION
     Dosage: UNK
     Dates: start: 1990

REACTIONS (19)
  - Stress fracture [Recovered/Resolved with Sequelae]
  - Intramedullary rod insertion [Unknown]
  - Surgery [Unknown]
  - Catheterisation cardiac [Unknown]
  - Low turnover osteopathy [Unknown]
  - Osteoarthritis [Unknown]
  - Anxiety [Not Recovered/Not Resolved]
  - Depression [Not Recovered/Not Resolved]
  - Blood cholesterol increased [Unknown]
  - Tooth fracture [Unknown]
  - Tooth extraction [Unknown]
  - Alveolar osteitis [Unknown]
  - Dental implantation [Unknown]
  - Pain [Unknown]
  - Hypokalaemia [Unknown]
  - Cystitis interstitial [Unknown]
  - Insomnia [Unknown]
  - Gastritis [Unknown]
  - Gastrooesophageal reflux disease [Unknown]
